FAERS Safety Report 8609651-1 (Version None)
Quarter: 2012Q3

REPORT INFORMATION
  Report Type: 
  Country: None (occurrence: None)
  Receive Date: 20120821
  Receipt Date: 20120810
  Transmission Date: 20120928
  Serious: Yes (Hospitalization, Other)
  Sender: FDA-Public Use
  Company Number: US-ACTELION-A-NJ2012-70217

PATIENT
  Age: 59 Year
  Sex: Male

DRUGS (2)
  1. EPOPROSTENOL SODIUM [Suspect]
     Indication: PULMONARY ARTERIAL HYPERTENSION
     Dosage: 8 NG/KG, PER MIN
     Route: 041
     Dates: start: 20120709
  2. SILDENAFIL [Concomitant]

REACTIONS (5)
  - DYSPNOEA [None]
  - BLOOD GLUCOSE ABNORMAL [None]
  - CONVULSION [None]
  - PULMONARY ARTERIAL HYPERTENSION [None]
  - HYPERTENSION [None]
